FAERS Safety Report 5632238-X (Version None)
Quarter: 2008Q1

REPORT INFORMATION
  Report Type: 
  Country: None (occurrence: None)
  Receive Date: 20080220
  Receipt Date: 20080212
  Transmission Date: 20080703
  Serious: Yes (Death)
  Sender: FDA-Public Use
  Company Number: JP-SANOFI-SYNTHELABO-A01200800493

PATIENT
  Sex: Male
  Weight: 61 kg

DRUGS (6)
  1. DECADRON [Concomitant]
     Indication: PREMEDICATION
     Dosage: 8 MG
     Route: 042
     Dates: start: 20071105, end: 20071119
  2. KYTRIL [Concomitant]
     Indication: PREMEDICATION
     Dosage: 3 MG
     Route: 042
     Dates: start: 20071105, end: 20071119
  3. ISOVORIN [Concomitant]
     Dosage: 325MG/BODY = 203.1 MG/M2 IN INFUSION ON DAY 1
     Route: 042
     Dates: start: 20071119, end: 20071119
  4. ELPLAT [Suspect]
     Indication: RECTAL CANCER
     Dosage: 140MG/BODY=87.5MG/M2 IN INFUSION ON DAY 1
     Route: 042
     Dates: start: 20071119, end: 20071119
  5. SINSERON [Concomitant]
     Indication: PROPHYLAXIS OF NAUSEA AND VOMITING
     Dosage: 8 MG
     Route: 048
     Dates: start: 20071106, end: 20071122
  6. FLUOROURACIL [Suspect]
     Dosage: 650MG/BODY = 406.3MG/M2 IN BOLUS THEN 4000MG/BODY = 2500MG/M2 AS CONTINUOUS INFUSION ON DAY 1-2
     Route: 042
     Dates: start: 20071119, end: 20071119

REACTIONS (4)
  - LEUKOPENIA [None]
  - NECROTISING FASCIITIS [None]
  - SEPSIS [None]
  - THROMBOCYTOPENIA [None]
